FAERS Safety Report 15375263 (Version 9)
Quarter: 2020Q1

REPORT INFORMATION
  Report Type: Spontaneous
  Country: RO (occurrence: RO)
  Receive Date: 20180912
  Receipt Date: 20200303
  Transmission Date: 20200409
  Serious: Yes (Hospitalization, Disabling, Other)
  Sender: FDA-Public Use
  Company Number: RO-MYLANLABS-2018M1066563

PATIENT
  Age: 69 Year
  Sex: Female

DRUGS (2)
  1. INDAPAMIDE. [Suspect]
     Active Substance: INDAPAMIDE
     Indication: PRODUCT USED FOR UNKNOWN INDICATION
     Dosage: UNK
     Route: 065
  2. INSULIN [Concomitant]
     Active Substance: INSULIN NOS
     Indication: TYPE 1 DIABETES MELLITUS
     Dosage: UNK
     Route: 065

REACTIONS (13)
  - Treatment noncompliance [Recovered/Resolved]
  - Renal impairment [Recovering/Resolving]
  - Asthenia [Recovering/Resolving]
  - Vertigo [Recovering/Resolving]
  - Hypervolaemia [Recovered/Resolved]
  - Dyspnoea [Unknown]
  - Hyponatraemia [Recovering/Resolving]
  - Oedema peripheral [Recovering/Resolving]
  - Renal function test abnormal [Recovered/Resolved]
  - Intentional product misuse [Unknown]
  - Dyspnoea exertional [Recovering/Resolving]
  - Creatinine renal clearance decreased [Recovered/Resolved]
  - Polydipsia [Unknown]

NARRATIVE: CASE EVENT DATE: 2018
